FAERS Safety Report 19922205 (Version 1)
Quarter: 2021Q4

REPORT INFORMATION
  Report Type: Spontaneous
  Country: DZ (occurrence: DZ)
  Receive Date: 20211006
  Receipt Date: 20211006
  Transmission Date: 20220303
  Serious: Yes (Life-Threatening, Hospitalization, Other)
  Sender: FDA-Public Use
  Company Number: DZ-NOVARTISPH-NVSC2021DZ226825

PATIENT
  Age: 71 Year
  Sex: Male

DRUGS (2)
  1. TASIGNA [Suspect]
     Active Substance: NILOTINIB
     Indication: Chronic myeloid leukaemia
     Dosage: 400 MG, BID
     Route: 048
     Dates: start: 20200609, end: 20210905
  2. TASIGNA [Suspect]
     Active Substance: NILOTINIB
     Dosage: 800 MG
     Route: 065

REACTIONS (3)
  - Hemiplegia [Recovering/Resolving]
  - Subdural haematoma [Recovering/Resolving]
  - General physical health deterioration [Recovering/Resolving]

NARRATIVE: CASE EVENT DATE: 20210905
